FAERS Safety Report 4716278-0 (Version None)
Quarter: 2005Q2

REPORT INFORMATION
  Report Type: 
  Country: None (occurrence: None)
  Receive Date: 20050630
  Receipt Date: 20050401
  Transmission Date: 20051028
  Serious: Yes (Hospitalization, Disabling, Other)
  Sender: FDA-Public Use
  Company Number: US_0504115055

PATIENT
  Age: 42 Year
  Sex: Male

DRUGS (2)
  1. HUMALOG MIX 75/25 [Suspect]
     Indication: DIABETES MELLITUS
     Dosage: 50 U/2 DAY
     Dates: start: 20010101
  2. LANTUS [Concomitant]

REACTIONS (2)
  - GANGRENE [None]
  - IMPAIRED HEALING [None]
